FAERS Safety Report 6807198-6 (Version None)
Quarter: 2010Q2

REPORT INFORMATION
  Report Type: 
  Country: None (occurrence: None)
  Receive Date: 20100629
  Receipt Date: 20081006
  Transmission Date: 20101027
  Serious: No
  Sender: FDA-Public Use
  Company Number: US-PFIZER INC-2008063303

PATIENT
  Sex: Male

DRUGS (1)
  1. REVATIO [Suspect]
     Indication: COR PULMONALE CHRONIC
     Dates: start: 20070820

REACTIONS (2)
  - DYSPNOEA [None]
  - MEDICATION ERROR [None]
